FAERS Safety Report 17699435 (Version 1)
Quarter: 2020Q2

REPORT INFORMATION
  Report Type: Spontaneous
  Country: CH (occurrence: CH)
  Receive Date: 20200423
  Receipt Date: 20200423
  Transmission Date: 20200714
  Serious: Yes (Life-Threatening, Hospitalization)
  Sender: FDA-Public Use
  Company Number: CH-PFIZER INC-2020161766

PATIENT
  Age: 53 Year
  Sex: Male

DRUGS (2)
  1. TRAMAL [Suspect]
     Active Substance: TRAMADOL
     Dosage: UNDETERMINED AMOUNT
  2. XANAX [Suspect]
     Active Substance: ALPRAZOLAM
     Dosage: UNDETERMINED AMOUNT

REACTIONS (3)
  - Hypotension [Recovered/Resolved]
  - Loss of consciousness [Recovered/Resolved]
  - Bradypnoea [Recovered/Resolved]

NARRATIVE: CASE EVENT DATE: 20200109
